FAERS Safety Report 17798289 (Version 7)
Quarter: 2020Q3

REPORT INFORMATION
  Report Type: Spontaneous
  Country: CN (occurrence: CN)
  Receive Date: 20200518
  Receipt Date: 20200720
  Transmission Date: 20201104
  Serious: Yes (Life-Threatening, Hospitalization)
  Sender: FDA-Public Use
  Company Number: CN-CELGENEUS-CHN-20200503875

PATIENT
  Age: 53 Year
  Sex: Male
  Weight: 60 kg

DRUGS (13)
  1. CARBOPLATIN. [Suspect]
     Active Substance: CARBOPLATIN
     Route: 041
     Dates: start: 20200515
  2. GLUTATHIONE [Concomitant]
     Active Substance: GLUTATHIONE
     Indication: PROPHYLAXIS
     Dosage: .9 GRAM
     Route: 048
     Dates: start: 20200420, end: 20200424
  3. SERPLULIMAB. [Suspect]
     Active Substance: SERPLULIMAB
     Dosage: 270 MILLIGRAM
     Route: 041
     Dates: start: 20200610
  4. CARBOPLATIN. [Suspect]
     Active Substance: CARBOPLATIN
     Route: 041
     Dates: start: 20200610
  5. SERPLULIMAB. [Suspect]
     Active Substance: SERPLULIMAB
     Indication: BRONCHIAL CARCINOMA
     Dosage: 270 MILLIGRAM
     Route: 041
     Dates: start: 20200417, end: 20200417
  6. ABRAXANE [Suspect]
     Active Substance: PACLITAXEL
     Dosage: 169 MILLIGRAM
     Route: 041
     Dates: start: 20200522, end: 20200529
  7. SERPLULIMAB. [Suspect]
     Active Substance: SERPLULIMAB
     Dosage: 270 MILLIGRAM
     Route: 041
     Dates: start: 20200515
  8. ABRAXANE [Suspect]
     Active Substance: PACLITAXEL
     Indication: BRONCHIAL CARCINOMA
     Dosage: 170 MILLIGRAM
     Route: 041
     Dates: start: 20200417, end: 20200424
  9. ENTECAVIR. [Concomitant]
     Active Substance: ENTECAVIR
     Indication: PROPHYLAXIS
     Dosage: .5 MILLIGRAM
     Route: 048
     Dates: start: 20200304
  10. ABRAXANE [Suspect]
     Active Substance: PACLITAXEL
     Dosage: 168 MILLIGRAM
     Route: 041
     Dates: start: 20200515, end: 20200515
  11. ABRAXANE [Suspect]
     Active Substance: PACLITAXEL
     Dosage: 169 MILLIGRAM
     Route: 041
     Dates: start: 20200610
  12. CARBOPLATIN. [Suspect]
     Active Substance: CARBOPLATIN
     Indication: BRONCHIAL CARCINOMA
     Route: 041
     Dates: start: 20200417, end: 20200417
  13. OXYCODONE AND ACETAMINOPHEN [Concomitant]
     Active Substance: ACETAMINOPHEN\OXYCODONE HYDROCHLORIDE
     Indication: PRODUCT USED FOR UNKNOWN INDICATION
     Dosage: 20 MILLIGRAM
     Route: 065
     Dates: start: 20200424, end: 20200501

REACTIONS (2)
  - Abdominal distension [Recovered/Resolved]
  - Pericardial effusion [Recovered/Resolved]

NARRATIVE: CASE EVENT DATE: 20200426
